FAERS Safety Report 6955754-7 (Version None)
Quarter: 2010Q3

REPORT INFORMATION
  Report Type: 
  Country: None (occurrence: None)
  Receive Date: 20100830
  Receipt Date: 20100823
  Transmission Date: 20110219
  Serious: Yes (Hospitalization, Other)
  Sender: FDA-Public Use
  Company Number: US-ROCHE-715703

PATIENT
  Sex: Male
  Weight: 98.9 kg

DRUGS (5)
  1. PEGASYS [Suspect]
     Indication: HEPATITIS C
     Route: 058
     Dates: start: 20100216, end: 20100322
  2. COPEGUS [Suspect]
     Indication: HEPATITIS C
     Route: 065
  3. WELLBUTRIN [Concomitant]
     Indication: DEPRESSION
  4. PRILOSEC [Concomitant]
  5. AMBIEN [Concomitant]
     Indication: ANXIETY
     Dosage: OTHER INDICATION: SLEEP

REACTIONS (6)
  - AGGRESSION [None]
  - ANXIETY [None]
  - BIPOLAR DISORDER [None]
  - INSOMNIA [None]
  - POST-TRAUMATIC STRESS DISORDER [None]
  - PSYCHOTIC DISORDER [None]
